FAERS Safety Report 24914471 (Version 1)
Quarter: 2025Q1

REPORT INFORMATION
  Report Type: Spontaneous
  Country: US (occurrence: US)
  Receive Date: 20250203
  Receipt Date: 20250203
  Transmission Date: 20250409
  Serious: Yes (Other)
  Sender: CSL BEHRING
  Company Number: US-BEH-2025193598

PATIENT
  Age: 48 Year
  Sex: Female

DRUGS (2)
  1. HIZENTRA [Suspect]
     Active Substance: HUMAN IMMUNOGLOBULIN G
     Indication: Hypogammaglobulinaemia
     Dosage: 12 G, EVERY 2 WEEKS (10 GM TOTAL)
     Route: 058
     Dates: start: 202409
  2. HIZENTRA [Suspect]
     Active Substance: HUMAN IMMUNOGLOBULIN G
     Dosage: 12 G, EVERY 2 WEEKS (2 GM TOTAL)
     Route: 058
     Dates: start: 202409

REACTIONS (7)
  - Hereditary angioedema [Unknown]
  - Infusion site bruising [Unknown]
  - Lethargy [Unknown]
  - Illness [Unknown]
  - Infection [Unknown]
  - Headache [Unknown]
  - Abdominal distension [Unknown]
